FAERS Safety Report 10997950 (Version 1)
Quarter: 2015Q2

REPORT INFORMATION
  Report Type: Spontaneous
  Country: US (occurrence: US)
  Receive Date: 20150408
  Receipt Date: 20150408
  Transmission Date: 20150821
  Serious: No
  Sender: FDA-Public Use
  Company Number: US-BANPHARM-20143312

PATIENT
  Age: 78 Year
  Sex: Female
  Weight: 131.52 kg

DRUGS (5)
  1. NAPROXEN SODIUM 220 MG [Suspect]
     Active Substance: NAPROXEN SODIUM
     Indication: PAIN
     Dosage: 220 MG, TID,
     Route: 048
     Dates: start: 20141214, end: 20141216
  2. MYRBETRIQ [Suspect]
     Active Substance: MIRABEGRON
     Indication: INCONTINENCE
     Dosage: 25 MG, QD,
     Dates: start: 20141213, end: 20141214
  3. METOPROLOL [Concomitant]
     Active Substance: METOPROLOL
     Dates: start: 2013
  4. LISINOPRIL. [Concomitant]
     Active Substance: LISINOPRIL
  5. WARFARIN [Concomitant]
     Active Substance: WARFARIN
     Dates: start: 2013

REACTIONS (1)
  - Blood pressure increased [Recovering/Resolving]
